FAERS Safety Report 9057845 (Version 1)
Quarter: 2013Q1

REPORT INFORMATION
  Report Type: Spontaneous
  Country: US (occurrence: None)
  Receive Date: 20130204
  Receipt Date: 20130204
  Transmission Date: 20140127
  Serious: Yes (Disabling)
  Sender: FDA-Public Use
  Company Number: None

PATIENT
  Age: 23 Year
  Sex: Male
  Weight: 77.11 kg

DRUGS (2)
  1. BOTOX [Suspect]
     Dosage: AVERAGE DOSAGE 1 TRANSDERMAL
     Dates: start: 20040116, end: 20040116
  2. BOTOX [Concomitant]

REACTIONS (7)
  - Skin odour abnormal [None]
  - Muscle injury [None]
  - Nerve injury [None]
  - Gastric disorder [None]
  - Paranoia [None]
  - Depression [None]
  - Dyspnoea [None]
